FAERS Safety Report 21754899 (Version 1)
Quarter: 2022Q4

REPORT INFORMATION
  Report Type: Spontaneous
  Country: NL (occurrence: NL)
  Receive Date: 20221220
  Receipt Date: 20221220
  Transmission Date: 20230113
  Serious: Yes (Hospitalization)
  Sender: FDA-Public Use
  Company Number: None

PATIENT
  Age: 77 Year
  Sex: Male
  Weight: 69.5 kg

DRUGS (9)
  1. METHYLPHENIDATE HYDROCHLORIDE [Suspect]
     Active Substance: METHYLPHENIDATE HYDROCHLORIDE
     Indication: Narcolepsy
     Dosage: 20 MILLIGRAM DAILY; 2 X PER DAY 2 PIECES , METHYLFENIDAAT TABLET MGA  5MG (BASE) / BRAND NAME NOT SP
     Route: 065
     Dates: start: 20221103, end: 20221121
  2. AUGMENTIN [Suspect]
     Active Substance: AMOXICILLIN\CLAVULANATE POTASSIUM
     Indication: Pneumonia
     Dosage: 3 DOSAGE FORMS DAILY; 1 PIECE 3 TIMES A DAY, AMOXICILLINE/CLAVULAANZUUR TABLET 500/125MG / AUGMENTIN
     Route: 065
     Dates: start: 20221119, end: 20221120
  3. CYANOCOBALAMIN [Concomitant]
     Active Substance: CYANOCOBALAMIN
     Indication: Product used for unknown indication
     Dosage: 1000 UG (MICROGRAM), STRENGTH : 1000UG / BRAND NAME NOT SPECIFIED, THERAPY START DATE : ASKU , THER
  4. SIMVASTATIN [Concomitant]
     Active Substance: SIMVASTATIN
     Indication: Product used for unknown indication
     Dosage: 40 MG (MILLIGRAM), STRENGTH :  40MG / BRAND NAME NOT SPECIFIED, THERAPY START DATE : ASKU , THERAPY
  5. MACROGOL/SALTS [Concomitant]
     Indication: Product used for unknown indication
     Dosage: POWDER FOR DRINK , MACROGOL/SALTS PDR V BEVERAGE (MOVIC/MOLAX/LAXT/GEN) / BRAND NAME NOT SPECIFIED,
  6. CALCIUM CARBONATE\CHOLECALCIFEROL [Concomitant]
     Active Substance: CALCIUM CARBONATE\CHOLECALCIFEROL
     Indication: Product used for unknown indication
     Dosage: 500MG/800IE, CALCIUMCARB/COLECALC CHEWTB 1.25G/800IE (500MG CA) / CALCI CHEW D3 CHEWABLE TABLET 500M
  7. XYLOMETAZOLINE [Concomitant]
     Active Substance: XYLOMETAZOLINE
     Indication: Product used for unknown indication
     Dosage: 1 MG/ML (MILLIGRAM PER MILLILITER), STRENGTH : 1MG/ML / BRAND NAME NOT SPECIFIED
  8. XARELTO [Concomitant]
     Active Substance: RIVAROXABAN
     Indication: Product used for unknown indication
     Dosage: 20 MG (MILLIGRAM), STRENGTH : 20 MG, THERAPY START DATE : ASKU , THERAPY END DATE : ASKU
  9. BENSERAZIDE HYDROCHLORIDE\LEVODOPA [Concomitant]
     Active Substance: BENSERAZIDE HYDROCHLORIDE\LEVODOPA
     Indication: Product used for unknown indication
     Dosage: 100/25 MG (MILLIGRAM), LEVODOPA/BENSERAZIDE TABLET 100/25MG / MADOPAR TABLET 125MG, THERAPY START D

REACTIONS (4)
  - Hepatic failure [Not Recovered/Not Resolved]
  - Malaise [Not Recovered/Not Resolved]
  - Dyspnoea [Not Recovered/Not Resolved]
  - Tachypnoea [Not Recovered/Not Resolved]

NARRATIVE: CASE EVENT DATE: 20221120
